FAERS Safety Report 5041614-8 (Version None)
Quarter: 2006Q2

REPORT INFORMATION
  Report Type: 
  Country: None (occurrence: None)
  Receive Date: 20060628
  Receipt Date: 20060621
  Transmission Date: 20061013
  Serious: Yes (Other)
  Sender: FDA-Public Use
  Company Number: FRWYE563619APR06

PATIENT
  Age: 78 Year
  Sex: Male

DRUGS (7)
  1. EFFEXOR [Suspect]
     Indication: DEPRESSION
     Dosage: 300 MG TOTAL DAILY ORAL; 150 MG TOTAL DAILY ORAL
     Route: 048
     Dates: start: 20060320, end: 20060101
  2. EFFEXOR [Suspect]
     Indication: DEPRESSION
     Dosage: 300 MG TOTAL DAILY ORAL; 150 MG TOTAL DAILY ORAL
     Route: 048
     Dates: start: 20060101, end: 20060417
  3. RISPERDAL [Concomitant]
  4. PLAVIX [Concomitant]
  5. NITRIDERM TTS (GLYCERYL TRINITRATE) [Concomitant]
  6. ZESTRIL [Concomitant]
  7. PRAZOSIN HCL [Concomitant]

REACTIONS (2)
  - CONDITION AGGRAVATED [None]
  - HYPERTENSION [None]
